FAERS Safety Report 4936364-X (Version None)
Quarter: 2006Q1

REPORT INFORMATION
  Report Type: 
  Country: None (occurrence: None)
  Receive Date: 20060302
  Receipt Date: 20060217
  Transmission Date: 20060701
  Serious: Yes (Death, Hospitalization)
  Sender: FDA-Public Use
  Company Number: US200602003166

PATIENT
  Age: 71 Year
  Sex: Female
  Weight: 59 kg

DRUGS (10)
  1. PEMETREXED (PREMETREXED) VIAL [Suspect]
     Indication: NON-SMALL CELL LUNG CANCER
     Dosage: 400 MG/M2 OTHER, INTRAVENOUS
     Route: 042
     Dates: start: 20051108, end: 20060124
  2. GEMCITABINE HYDROCHLORIDE(GEMCITABINE HYDROCHLORIDE) VIAL [Suspect]
     Indication: NON-SMALL CELL LUNG CANCER
     Dosage: 1200 MG/M2, OTHER, INTRAVENOUS
     Route: 042
     Dates: start: 20051108, end: 20060124
  3. NEURONTIN [Concomitant]
  4. DOXEPIN HCL [Concomitant]
  5. LEVOTHROID [Concomitant]
  6. XANAX [Concomitant]
  7. ZOLOFT [Concomitant]
  8. FOLIC ACID [Concomitant]
  9. VITAMIN B12 [Concomitant]
  10. DECADRON [Concomitant]

REACTIONS (12)
  - ALANINE AMINOTRANSFERASE INCREASED [None]
  - ASPARTATE AMINOTRANSFERASE INCREASED [None]
  - BLOOD PH INCREASED [None]
  - CHRONIC OBSTRUCTIVE PULMONARY DISEASE [None]
  - CONDITION AGGRAVATED [None]
  - DRUG INEFFECTIVE [None]
  - HYPOXIA [None]
  - NEUTROPENIA [None]
  - OEDEMA [None]
  - PNEUMONIA [None]
  - PULMONARY FIBROSIS [None]
  - WHITE BLOOD CELL COUNT DECREASED [None]
